FAERS Safety Report 8477073-2 (Version None)
Quarter: 2012Q2

REPORT INFORMATION
  Report Type: 
  Country: None (occurrence: None)
  Receive Date: 20120629
  Receipt Date: 20120625
  Transmission Date: 20120825
  Serious: No
  Sender: FDA-Public Use
  Company Number: US-PFIZER INC-2012153245

PATIENT
  Sex: Female
  Weight: 54.422 kg

DRUGS (7)
  1. ESTRADIOL [Suspect]
     Dosage: UNK
  2. SINGULAIR [Concomitant]
     Indication: HYPERSENSITIVITY
     Dosage: UNK, 1X/DAY
  3. SINGULAIR [Concomitant]
     Indication: DYSPNOEA
  4. VITAMIN D [Concomitant]
     Indication: VITAMIN SUPPLEMENTATION
     Dosage: UNK, 1X/DAY
  5. PREMARIN [Suspect]
     Dosage: 0.625 MG, ALTERNATE DAY
     Dates: end: 20120601
  6. BIOTIN [Concomitant]
     Indication: VITAMIN SUPPLEMENTATION
     Dosage: UNK, 1X/DAY
  7. VITAMIN B COMPLEX CAP [Concomitant]
     Indication: VITAMIN SUPPLEMENTATION
     Dosage: UNK, 1X/DAY

REACTIONS (3)
  - SLUGGISHNESS [None]
  - FATIGUE [None]
  - DRUG INEFFECTIVE [None]
